FAERS Safety Report 7971299-X (Version None)
Quarter: 2011Q4

REPORT INFORMATION
  Report Type: 
  Country: None (occurrence: None)
  Receive Date: 20111212
  Receipt Date: 20111005
  Transmission Date: 20120403
  Serious: Yes (Other)
  Sender: FDA-Public Use
  Company Number: US-BRISTOL-MYERS SQUIBB COMPANY-16135311

PATIENT
  Age: 6 Decade
  Sex: Female

DRUGS (2)
  1. IXEMPRA KIT [Suspect]
     Dosage: 2 OR 3 DOSES,4TH LINE OF CHEMO 1ST DOSE WITH XELODA
  2. XELODA [Suspect]
     Dosage: 4TH LINE OF CHEMO 1ST DOSE WITH IXEMPRA

REACTIONS (1)
  - NEUROPATHY PERIPHERAL [None]
